FAERS Safety Report 5076657-1 (Version None)
Quarter: 2006Q3

REPORT INFORMATION
  Report Type: 
  Country: None (occurrence: None)
  Receive Date: 20060810
  Receipt Date: 20060724
  Transmission Date: 20061208
  Serious: Yes (Death, Life-Threatening)
  Sender: FDA-Public Use
  Company Number: JP-AVENTIS-200612339JP

PATIENT
  Age: 76 Year
  Sex: Male
  Weight: 50 kg

DRUGS (13)
  1. ARAVA [Suspect]
     Indication: RHEUMATOID ARTHRITIS
     Route: 048
     Dates: start: 20040320, end: 20040413
  2. ARAVA [Suspect]
     Route: 048
     Dates: start: 20040414, end: 20050916
  3. FOSAMAC TABLETS [Suspect]
     Indication: OSTEOPOROSIS
     Route: 048
     Dates: start: 20040320, end: 20050916
  4. GASTER [Concomitant]
     Indication: GASTRITIS
     Route: 048
     Dates: start: 20040320, end: 20050916
  5. GASTER [Concomitant]
     Indication: PROPHYLAXIS
     Route: 048
     Dates: start: 20040320, end: 20050916
  6. PROMAC                                  /JPN/ [Concomitant]
     Indication: GASTRITIS
     Route: 048
     Dates: start: 20040320, end: 20050916
  7. PROMAC                                  /JPN/ [Concomitant]
     Indication: PROPHYLAXIS
     Route: 048
     Dates: start: 20040320, end: 20050916
  8. PREDONINE [Concomitant]
     Indication: INFLAMMATION
     Route: 048
     Dates: start: 20040320, end: 20040514
  9. PREDONINE [Concomitant]
     Route: 048
     Dates: start: 20040515, end: 20040723
  10. PREDONINE [Concomitant]
     Route: 048
     Dates: start: 20040724, end: 20040924
  11. PREDONINE [Concomitant]
     Route: 048
     Dates: start: 20040925, end: 20041029
  12. PREDONINE [Concomitant]
     Route: 048
     Dates: start: 20041030, end: 20050304
  13. PREDNISOLONE [Concomitant]
     Indication: INFLAMMATION
     Route: 048
     Dates: start: 20050305, end: 20050916

REACTIONS (11)
  - ASPIRATION [None]
  - BACK PAIN [None]
  - BLADDER CANCER [None]
  - DEHYDRATION [None]
  - DRUG INTERACTION [None]
  - NASOPHARYNGITIS [None]
  - OBSTRUCTIVE AIRWAYS DISORDER [None]
  - PANCREATIC CARCINOMA [None]
  - PRODUCTIVE COUGH [None]
  - RESPIRATORY FAILURE [None]
  - SCIATICA [None]
